FAERS Safety Report 7986843-6 (Version None)
Quarter: 2011Q4

REPORT INFORMATION
  Report Type: 
  Country: None (occurrence: None)
  Receive Date: 20111216
  Receipt Date: 20110225
  Transmission Date: 20120403
  Serious: Yes (Other)
  Sender: FDA-Public Use
  Company Number: US-BRISTOL-MYERS SQUIBB COMPANY-15570500

PATIENT
  Age: 50 Year
  Sex: Female
  Weight: 65 kg

DRUGS (8)
  1. ABILIFY [Suspect]
     Indication: BIPOLAR DISORDER
     Dates: start: 20110106, end: 20110109
  2. IBUPROFEN (ADVIL) [Concomitant]
  3. ASPIRIN [Concomitant]
  4. IRON [Concomitant]
  5. CALCIUM [Concomitant]
  6. GLUCOSAMINE [Concomitant]
  7. MULTI-VITAMINS [Concomitant]
  8. FISH OIL [Concomitant]

REACTIONS (2)
  - SUICIDAL IDEATION [None]
  - DEPRESSION [None]
